FAERS Safety Report 17204741 (Version 1)
Quarter: 2019Q4

REPORT INFORMATION
  Report Type: Spontaneous
  Country: US (occurrence: US)
  Receive Date: 20191226
  Receipt Date: 20191226
  Transmission Date: 20200122
  Serious: Yes (Other)
  Sender: FDA-Public Use
  Company Number: US-AMGEN-USASP2019212837

PATIENT
  Age: 68 Year
  Sex: Male

DRUGS (3)
  1. NPLATE [Suspect]
     Active Substance: ROMIPLOSTIM
     Dosage: 5 MICROGRAM/KILOGRAM
     Route: 065
     Dates: start: 201912
  2. NPLATE [Suspect]
     Active Substance: ROMIPLOSTIM
     Indication: IMMUNE THROMBOCYTOPENIC PURPURA
     Dosage: 7 MICROGRAM/KILOGRAM, QWK
     Route: 065
     Dates: start: 201909
  3. KLONOPIN [Concomitant]
     Active Substance: CLONAZEPAM
     Dosage: UNK, AS NEEDED
     Dates: start: 201910

REACTIONS (7)
  - Platelet count decreased [Unknown]
  - Irritability [Unknown]
  - Suicidal ideation [Unknown]
  - Insomnia [Unknown]
  - Tearfulness [Unknown]
  - Anxiety [Unknown]
  - Bone pain [Unknown]

NARRATIVE: CASE EVENT DATE: 201912
